FAERS Safety Report 19501997 (Version 1)
Quarter: 2021Q3

REPORT INFORMATION
  Report Type: Spontaneous
  Country: US (occurrence: US)
  Receive Date: 20210707
  Receipt Date: 20210707
  Transmission Date: 20211014
  Serious: Yes (Hospitalization)
  Sender: FDA-Public Use
  Company Number: None

PATIENT
  Sex: Female

DRUGS (14)
  1. DIAZEPAM. [Concomitant]
     Active Substance: DIAZEPAM
  2. SERTRALINE [Concomitant]
     Active Substance: SERTRALINE HYDROCHLORIDE
  3. OLMESA MEDOX [Concomitant]
  4. AMLODIPINE [Concomitant]
     Active Substance: AMLODIPINE BESYLATE
  5. MEMANTINE. [Concomitant]
     Active Substance: MEMANTINE
  6. SPIRONO/HCTZ [Concomitant]
  7. HYDROCO/APAP [Concomitant]
     Active Substance: ACETAMINOPHEN\HYDROCODONE
  8. OLANZAPINE. [Concomitant]
     Active Substance: OLANZAPINE
  9. VIT D [Concomitant]
     Active Substance: VITAMIN D NOS
  10. COSENTYX [Suspect]
     Active Substance: SECUKINUMAB
     Indication: PSORIASIS
     Dosage: OTHER FREQUENCY:Q4WKS;?
     Route: 058
     Dates: start: 20200321
  11. GABAPENTIN. [Concomitant]
     Active Substance: GABAPENTIN
  12. KETOCONAZOLE. [Concomitant]
     Active Substance: KETOCONAZOLE
  13. NAPROXEN. [Concomitant]
     Active Substance: NAPROXEN
  14. NARCAN [Concomitant]
     Active Substance: NALOXONE HYDROCHLORIDE

REACTIONS (2)
  - Surgery [None]
  - Therapy interrupted [None]
